FAERS Safety Report 9957707 (Version 1)
Quarter: 2014Q1

REPORT INFORMATION
  Report Type: Report from Study
  Country: US (occurrence: US)
  Receive Date: 20140304
  Receipt Date: 20140304
  Transmission Date: 20141002
  Serious: No
  Sender: FDA-Public Use
  Company Number: US-ABBVIE-13P-163-1091817-00

PATIENT
  Age: 78 Year
  Sex: Female

DRUGS (16)
  1. HUMIRA [Suspect]
     Indication: PSORIASIS
     Dates: start: 20120917
  2. GLYCOLAX [Concomitant]
     Indication: CONSTIPATION
     Dosage: 1 CAPFUL DAILY
  3. CARVEDILOL [Concomitant]
     Indication: BLOOD PRESSURE
  4. CARVEDILOL [Concomitant]
     Indication: BLOOD CHOLESTEROL
  5. ASA [Concomitant]
     Indication: THROMBOSIS PROPHYLAXIS
  6. CENTRUM SILVER [Concomitant]
     Indication: PRODUCT USED FOR UNKNOWN INDICATION
     Dosage: DAILY
  7. FOLIC ACID [Concomitant]
     Indication: PRODUCT USED FOR UNKNOWN INDICATION
     Dosage: DAILY
  8. VITAMIN B-12 [Concomitant]
     Indication: PRODUCT USED FOR UNKNOWN INDICATION
     Dosage: DAILY
  9. VITAMIN D3 [Concomitant]
     Indication: PRODUCT USED FOR UNKNOWN INDICATION
  10. NIACIN [Concomitant]
     Indication: BLOOD CHOLESTEROL
  11. ATORVASTATIN [Concomitant]
     Indication: PRODUCT USED FOR UNKNOWN INDICATION
  12. OMEPRAZOLE [Concomitant]
     Indication: GASTROOESOPHAGEAL REFLUX DISEASE
  13. LOSARTAN POTASSIUM [Concomitant]
     Indication: PRODUCT USED FOR UNKNOWN INDICATION
  14. FAMOTIDINE [Concomitant]
     Indication: PRODUCT USED FOR UNKNOWN INDICATION
  15. CRANBERRY [Concomitant]
     Indication: PROPHYLAXIS URINARY TRACT INFECTION
  16. TRIAZOLAM [Concomitant]
     Indication: INSOMNIA
     Dosage: 0.25 MG 1/2 AT BEDTIME OR AS NEEDED

REACTIONS (6)
  - Fatigue [Recovered/Resolved]
  - Abdominal pain upper [Recovered/Resolved]
  - Abdominal pain upper [Recovered/Resolved]
  - Fatigue [Recovered/Resolved]
  - Abdominal pain upper [Recovered/Resolved]
  - Abdominal pain upper [Recovered/Resolved]
